FAERS Safety Report 9517303 (Version 1)
Quarter: 2013Q3

REPORT INFORMATION
  Report Type: Spontaneous
  Country: US (occurrence: US)
  Receive Date: 20130911
  Receipt Date: 20130911
  Transmission Date: 20140515
  Serious: No
  Sender: FDA-Public Use
  Company Number: US-ASTRAZENECA-2013SE60042

PATIENT
  Sex: Female

DRUGS (3)
  1. SYMBICORT PMDI [Suspect]
     Indication: ASTHMA
     Dosage: 160/4.5, 2 PUFFS BID
     Route: 055
     Dates: start: 201307, end: 201307
  2. PULMICORT FLEXHALER [Suspect]
     Indication: ASTHMA
     Dosage: 2 PUFFS BID
     Route: 055
     Dates: start: 201308
  3. ALBUTEROL [Concomitant]
     Indication: INHALATION THERAPY

REACTIONS (4)
  - Oral discomfort [Unknown]
  - Mouth ulceration [Unknown]
  - Drug hypersensitivity [Unknown]
  - Circumstance or information capable of leading to medication error [Unknown]
